FAERS Safety Report 21605450 (Version 2)
Quarter: 2022Q4

REPORT INFORMATION
  Report Type: Spontaneous
  Country: BR (occurrence: BR)
  Receive Date: 20221116
  Receipt Date: 20221227
  Transmission Date: 20230112
  Serious: Yes (Hospitalization, Other)
  Sender: FDA-Public Use
  Company Number: BR-SA-SAC20221110001557

PATIENT

DRUGS (1)
  1. LARONIDASE [Suspect]
     Active Substance: LARONIDASE
     Indication: Mucopolysaccharidosis I
     Dosage: 20 DF, QOW
     Route: 041
     Dates: start: 20221024

REACTIONS (10)
  - Exophthalmos [Unknown]
  - Endotracheal intubation [Unknown]
  - Feeling cold [Unknown]
  - Cyanosis [Unknown]
  - Hyperhidrosis [Unknown]
  - Dyspnoea [Unknown]
  - Productive cough [Recovering/Resolving]
  - Fatigue [Recovering/Resolving]
  - Pyrexia [Recovering/Resolving]
  - Inappropriate schedule of product administration [Unknown]

NARRATIVE: CASE EVENT DATE: 20220101
